FAERS Safety Report 5105726-2 (Version None)
Quarter: 2006Q3

REPORT INFORMATION
  Report Type: 
  Country: None (occurrence: None)
  Receive Date: 20060915
  Receipt Date: 20060707
  Transmission Date: 20061208
  Serious: Yes (Hospitalization)
  Sender: FDA-Public Use
  Company Number: US-SANOFI-SYNTHELABO-A03200604428

PATIENT
  Sex: Female
  Weight: 77.1 kg

DRUGS (6)
  1. ALTACE [Concomitant]
     Dosage: UNK
     Route: 065
     Dates: start: 20020101
  2. COREG [Concomitant]
     Dosage: UNK
     Route: 065
  3. GLUCOVANCE [Suspect]
     Indication: DIABETES MELLITUS
     Route: 048
     Dates: start: 19960101
  4. PRAVACHOL [Suspect]
     Indication: BLOOD CHOLESTEROL INCREASED
     Route: 048
     Dates: start: 20060101
  5. PLAVIX [Suspect]
     Indication: CEREBROVASCULAR ACCIDENT
     Route: 048
     Dates: start: 20040101
  6. LIPITOR [Suspect]
     Indication: BLOOD CHOLESTEROL INCREASED
     Dosage: UNK
     Route: 048
     Dates: end: 20060101

REACTIONS (2)
  - ALOPECIA [None]
  - NEPHROLITHIASIS [None]
